FAERS Safety Report 8247955-5 (Version None)
Quarter: 2012Q1

REPORT INFORMATION
  Report Type: 
  Country: None (occurrence: None)
  Receive Date: 20120330
  Receipt Date: 20120326
  Transmission Date: 20120608
  Serious: Yes (Other)
  Sender: FDA-Public Use
  Company Number: US-PFIZER INC-2012054103

PATIENT

DRUGS (1)
  1. PRISTIQ [Suspect]
     Dosage: 100 MG, DAILY

REACTIONS (1)
  - PLATELET COUNT DECREASED [None]
